FAERS Safety Report 6769550-7 (Version None)
Quarter: 2010Q2

REPORT INFORMATION
  Report Type: 
  Country: None (occurrence: None)
  Receive Date: 20100615
  Receipt Date: 20100602
  Transmission Date: 20101027
  Serious: Yes (Other)
  Sender: FDA-Public Use
  Company Number: PHHY2010BR35685

PATIENT
  Sex: Female

DRUGS (2)
  1. DIOVAN HCT [Suspect]
     Dosage: COATED TABLET (80/12.5 MG)
  2. DIOVAN HCT [Suspect]
     Dosage: COATED TABLET (160/12.5 MG)

REACTIONS (2)
  - BREAST CANCER [None]
  - BREAST MASS [None]
